FAERS Safety Report 6769709-9 (Version None)
Quarter: 2010Q2

REPORT INFORMATION
  Report Type: 
  Country: None (occurrence: None)
  Receive Date: 20100615
  Receipt Date: 20100603
  Transmission Date: 20101027
  Serious: Yes (Hospitalization)
  Sender: FDA-Public Use
  Company Number: CA-ROCHE-707609

PATIENT
  Sex: Female

DRUGS (1)
  1. TOCILIZUMAB [Suspect]
     Dosage: LAST DOSE PRIOR TO SAE: 20 MAY 2010.
     Route: 042
     Dates: start: 20100520

REACTIONS (1)
  - BENIGN INTRACRANIAL HYPERTENSION [None]
